FAERS Safety Report 8426369-9 (Version None)
Quarter: 2012Q2

REPORT INFORMATION
  Report Type: 
  Country: None (occurrence: None)
  Receive Date: 20120611
  Receipt Date: 20120605
  Transmission Date: 20120825
  Serious: No
  Sender: FDA-Public Use
  Company Number: US-PFIZER INC-2012105473

PATIENT
  Sex: Female

DRUGS (2)
  1. XALKORI [Suspect]
     Indication: LUNG NEOPLASM MALIGNANT
     Dosage: 150 BID
     Route: 048
  2. ATIVAN [Concomitant]
     Dosage: UNK, PRN

REACTIONS (3)
  - RASH [None]
  - PAIN IN EXTREMITY [None]
  - ERYTHEMA [None]
